FAERS Safety Report 20933219 (Version 15)
Quarter: 2023Q4

REPORT INFORMATION
  Report Type: Report from Study
  Country: US (occurrence: US)
  Receive Date: 20220608
  Receipt Date: 20231114
  Transmission Date: 20240110
  Serious: Yes (Other)
  Sender: FDA-Public Use
  Company Number: US-002147023-NVSC2022US131358

PATIENT
  Sex: Female

DRUGS (2)
  1. KESIMPTA [Suspect]
     Active Substance: OFATUMUMAB
     Indication: Relapsing multiple sclerosis
     Dosage: UNK UNK, QW
     Route: 058
     Dates: start: 20220428
  2. KESIMPTA [Suspect]
     Active Substance: OFATUMUMAB
     Dosage: UNK UNK, QMO
     Route: 058

REACTIONS (29)
  - Multiple sclerosis relapse [Unknown]
  - Gait disturbance [Unknown]
  - Loss of consciousness [Unknown]
  - Feeling abnormal [Unknown]
  - Pain [Recovered/Resolved]
  - Memory impairment [Unknown]
  - Fall [Unknown]
  - Vision blurred [Unknown]
  - Muscular weakness [Unknown]
  - Pain [Unknown]
  - Sleep disorder [Unknown]
  - Influenza like illness [Unknown]
  - Fatigue [Unknown]
  - Asthenia [Unknown]
  - Irritability [Not Recovered/Not Resolved]
  - Depressed mood [Unknown]
  - Mood altered [Unknown]
  - Ageusia [Unknown]
  - Confusional state [Unknown]
  - Balance disorder [Unknown]
  - Anosmia [Unknown]
  - Insomnia [Unknown]
  - Hyperhidrosis [Unknown]
  - Dysarthria [Unknown]
  - Mental disorder [Unknown]
  - Crying [Unknown]
  - Euphoric mood [Unknown]
  - Disturbance in attention [Unknown]
  - Drug ineffective [Unknown]
